FAERS Safety Report 8981334 (Version 1)
Quarter: 2012Q4

REPORT INFORMATION
  Report Type: 
  Country: US (occurrence: US)
  Receive Date: 20121221
  Receipt Date: 20121221
  Transmission Date: 20130627
  Serious: No
  Sender: FDA-Public Use
  Company Number: US-BAYER-2012-129511

PATIENT
  Age: 64 Year
  Sex: Male
  Weight: 84 kg

DRUGS (6)
  1. ALEVE CAPLET/TABLET,MIDOL EXTENDED RELIEF CAPLET [Suspect]
     Indication: ARTHRITIS
     Dosage: 2 DF, QD
     Route: 048
  2. ANTIHYPERTENSIVES [Concomitant]
  3. CHOLESTEROL- AND TRIGLYCERIDE REDUCERS [Concomitant]
  4. HEART MEDICATION (NOS) [Concomitant]
  5. BUFFERIN [Concomitant]
  6. TYLENOL ARTHRITIS [Concomitant]

REACTIONS (2)
  - Incorrect drug administration duration [None]
  - Drug effect incomplete [None]
